FAERS Safety Report 10268795 (Version 2)
Quarter: 2014Q3

REPORT INFORMATION
  Report Type: Spontaneous
  Country: US (occurrence: US)
  Receive Date: 20140630
  Receipt Date: 20140717
  Transmission Date: 20150326
  Serious: Yes (Hospitalization)
  Sender: FDA-Public Use
  Company Number: US-GLAXOSMITHKLINE-A1078249A

PATIENT
  Sex: Female

DRUGS (5)
  1. LYRICA [Concomitant]
     Active Substance: PREGABALIN
  2. PROTONIX [Concomitant]
     Active Substance: PANTOPRAZOLE SODIUM
  3. PROCARDIA [Concomitant]
     Active Substance: NIFEDIPINE
  4. CHOLESTEROL REDUCING AGENT [Concomitant]
  5. VENTOLIN [Suspect]
     Active Substance: ALBUTEROL SULFATE
     Indication: CHRONIC OBSTRUCTIVE PULMONARY DISEASE
     Dosage: 2PUFF AS REQUIRED
     Route: 055

REACTIONS (16)
  - Hypertension [Unknown]
  - Arthritis [Unknown]
  - Mitral valve prolapse [Unknown]
  - Chest discomfort [Unknown]
  - Intervertebral disc protrusion [Unknown]
  - Treatment noncompliance [Unknown]
  - Heart rate decreased [Unknown]
  - Muscle spasms [Unknown]
  - Rotator cuff syndrome [Unknown]
  - Blood cholesterol increased [Unknown]
  - Ill-defined disorder [Unknown]
  - Chest pain [Not Recovered/Not Resolved]
  - Decreased appetite [Unknown]
  - Catheterisation cardiac [Unknown]
  - Feeling abnormal [Unknown]
  - Heart rate increased [Unknown]

NARRATIVE: CASE EVENT DATE: 2010
